FAERS Safety Report 19397396 (Version 1)
Quarter: 2021Q2

REPORT INFORMATION
  Report Type: Spontaneous
  Country: IN (occurrence: IN)
  Receive Date: 20210610
  Receipt Date: 20210610
  Transmission Date: 20210717
  Serious: Yes (Other)
  Sender: FDA-Public Use
  Company Number: IN-LUPIN LIMITED-2021-08954

PATIENT
  Age: 24 Year
  Sex: Female

DRUGS (8)
  1. RIFAMPIN. [Suspect]
     Active Substance: RIFAMPIN
     Indication: TUBERCULOSIS
  2. RIFAMPIN. [Suspect]
     Active Substance: RIFAMPIN
     Indication: INFECTIOUS PLEURAL EFFUSION
     Dosage: UNK, FOR PAST TWO WEEKS
     Route: 065
  3. ETHAMBUTOL [Suspect]
     Active Substance: ETHAMBUTOL HYDROCHLORIDE
     Indication: INFECTIOUS PLEURAL EFFUSION
     Dosage: UNK, FOR PAST TWO WEEKS
     Route: 065
  4. ETHAMBUTOL [Suspect]
     Active Substance: ETHAMBUTOL HYDROCHLORIDE
     Indication: TUBERCULOSIS
  5. PYRAZINAMIDE. [Suspect]
     Active Substance: PYRAZINAMIDE
     Indication: INFECTIOUS PLEURAL EFFUSION
     Dosage: UNK, FOR PAST TWO WEEKS
     Route: 065
  6. ISONIAZID. [Suspect]
     Active Substance: ISONIAZID
     Indication: INFECTIOUS PLEURAL EFFUSION
     Dosage: UNK, FOR PAST TWO WEEKS
     Route: 065
  7. PYRAZINAMIDE. [Suspect]
     Active Substance: PYRAZINAMIDE
     Indication: TUBERCULOSIS
  8. ISONIAZID. [Suspect]
     Active Substance: ISONIAZID
     Indication: TUBERCULOSIS

REACTIONS (1)
  - Immune thrombocytopenia [Recovered/Resolved]
